FAERS Safety Report 6892991-4 (Version None)
Quarter: 2010Q3

REPORT INFORMATION
  Report Type: 
  Country: None (occurrence: None)
  Receive Date: 20100731
  Receipt Date: 20081217
  Transmission Date: 20110219
  Serious: No
  Sender: FDA-Public Use
  Company Number: US-PFIZER INC-2008092626

PATIENT
  Sex: Female

DRUGS (3)
  1. DEPO-MEDROL [Suspect]
     Dates: start: 20080903
  2. DEXAMETHASONE SODIUM PHOSPHATE [Suspect]
     Indication: ARTHROPATHY
     Dates: start: 20080903
  3. MARCAINE [Suspect]
     Indication: ARTHROPATHY
     Dates: start: 20080903

REACTIONS (3)
  - EYE IRRITATION [None]
  - HEADACHE [None]
  - PALPITATIONS [None]
